FAERS Safety Report 25289570 (Version 2)
Quarter: 2025Q2

REPORT INFORMATION
  Report Type: Spontaneous
  Country: BE (occurrence: BE)
  Receive Date: 20250509
  Receipt Date: 20250515
  Transmission Date: 20250717
  Serious: Yes (Other)
  Sender: ALEXION PHARMACEUTICALS
  Company Number: BE-AstraZeneca-CH-00849720A

PATIENT
  Age: 32 Year

DRUGS (4)
  1. BENRALIZUMAB [Suspect]
     Active Substance: BENRALIZUMAB
  2. BENRALIZUMAB [Suspect]
     Active Substance: BENRALIZUMAB
  3. TEZEPELUMAB [Suspect]
     Active Substance: TEZEPELUMAB
     Indication: Asthma
     Dosage: 210 MILLIGRAM, Q4W
  4. OXYGEN [Concomitant]
     Active Substance: OXYGEN
     Route: 065

REACTIONS (9)
  - Eosinophilia [Unknown]
  - Lung disorder [Unknown]
  - Lung infiltration [Unknown]
  - Malaise [Unknown]
  - Chest discomfort [Unknown]
  - Blood fibrinogen increased [Unknown]
  - C-reactive protein increased [Unknown]
  - Drug ineffective [Unknown]
  - Off label use [Recovered/Resolved]
